FAERS Safety Report 18695055 (Version 1)
Quarter: 2021Q1

REPORT INFORMATION
  Report Type: Report from Study
  Country: IT (occurrence: IT)
  Receive Date: 20210104
  Receipt Date: 20210104
  Transmission Date: 20210419
  Serious: Yes (Other)
  Sender: FDA-Public Use
  Company Number: IT-TEVA-2020-IT-1864526

PATIENT
  Age: 72 Year
  Sex: Male

DRUGS (9)
  1. TAMSULOSIN HYDROCHLORIDE. [Suspect]
     Active Substance: TAMSULOSIN HYDROCHLORIDE
     Indication: BENIGN PROSTATIC HYPERPLASIA
     Dosage: UNIT DOSE : 0.4 MG
     Route: 048
     Dates: start: 20201123, end: 20201127
  2. RAMIPRIL. [Concomitant]
     Active Substance: RAMIPRIL
  3. LYSINE ASPIRIN [Concomitant]
     Active Substance: ASPIRIN DL-LYSINE
  4. AMIODARONE HYDROCHLORIDE. [Concomitant]
     Active Substance: AMIODARONE HYDROCHLORIDE
  5. ATORVASTATIN [Concomitant]
     Active Substance: ATORVASTATIN
  6. POTASSIUM CANRENOATE [Concomitant]
     Active Substance: CANRENOATE POTASSIUM
  7. RIVAROXABAN [Concomitant]
     Active Substance: RIVAROXABAN
  8. PANTOPRAZOLE [Concomitant]
     Active Substance: PANTOPRAZOLE
  9. BISOPROLOL HEMIFUMARATE [Concomitant]
     Active Substance: BISOPROLOL FUMARATE

REACTIONS (6)
  - Bradycardia [Recovered/Resolved]
  - Syncope [Recovered/Resolved]
  - Presyncope [Recovered/Resolved]
  - Pallor [Recovered/Resolved]
  - Hypotension [Recovered/Resolved]
  - Hyperhidrosis [Recovered/Resolved]

NARRATIVE: CASE EVENT DATE: 20201127
